FAERS Safety Report 22361592 (Version 1)
Quarter: 2023Q2

REPORT INFORMATION
  Report Type: Other
  Country: US (occurrence: None)
  Receive Date: 20230524
  Receipt Date: 20230524
  Transmission Date: 20230722
  Serious: Yes (Death, Other)
  Sender: FDA-Public Use
  Company Number: US-ROCHE-3354349

PATIENT

DRUGS (8)
  1. ATEZOLIZUMAB [Suspect]
     Active Substance: ATEZOLIZUMAB
     Indication: Neoplasm malignant
     Route: 065
  2. PEMBROLIZUMAB [Suspect]
     Active Substance: PEMBROLIZUMAB
     Indication: Neoplasm malignant
     Route: 065
  3. NIVOLUMAB [Suspect]
     Active Substance: NIVOLUMAB
     Indication: Neoplasm malignant
     Route: 065
  4. CEMIPLIMAB [Suspect]
     Active Substance: CEMIPLIMAB
     Indication: Neoplasm malignant
     Route: 065
  5. AVELUMAB [Suspect]
     Active Substance: AVELUMAB
     Indication: Neoplasm malignant
     Route: 065
  6. DURVALUMAB [Suspect]
     Active Substance: DURVALUMAB
     Indication: Neoplasm malignant
     Route: 065
  7. IPILIMUMAB [Suspect]
     Active Substance: IPILIMUMAB
     Indication: Neoplasm malignant
     Route: 065
  8. TREMELIMUMAB [Suspect]
     Active Substance: TREMELIMUMAB
     Indication: Neoplasm malignant
     Route: 065

REACTIONS (38)
  - Myocarditis [Fatal]
  - Adrenal disorder [Unknown]
  - Rheumatoid arthritis [Unknown]
  - Arthritis [Unknown]
  - Enteritis [Unknown]
  - Hypothalamo-pituitary disorder [Unknown]
  - Cytopenia [Unknown]
  - Autoimmune haemolytic anaemia [Unknown]
  - Immune thrombocytopenia [Unknown]
  - Haemolytic uraemic syndrome [Unknown]
  - Aplastic anaemia [Unknown]
  - Sjogren^s syndrome [Unknown]
  - Neuropathy peripheral [Unknown]
  - Encephalitis [Unknown]
  - Autonomic neuropathy [Unknown]
  - Myelitis transverse [Unknown]
  - Polymyalgia rheumatica [Unknown]
  - Colitis [Unknown]
  - Rash [Unknown]
  - Dermatitis [Unknown]
  - Hypothyroidism [Unknown]
  - Hyperthyroidism [Unknown]
  - Type 1 diabetes mellitus [Unknown]
  - Hepatitis [Unknown]
  - Pneumonitis [Unknown]
  - Vasculitis [Unknown]
  - Pericarditis [Unknown]
  - Myositis [Unknown]
  - Meningitis [Unknown]
  - Guillain-Barre syndrome [Unknown]
  - Myasthenia gravis [Unknown]
  - Nephritis [Unknown]
  - Pancreatitis [Unknown]
  - Uveitis [Unknown]
  - Iritis [Unknown]
  - Episcleritis [Unknown]
  - Vitiligo [Unknown]
  - Blepharitis [Unknown]
